FAERS Safety Report 11608728 (Version 1)
Quarter: 2015Q3

REPORT INFORMATION
  Report Type: Spontaneous
  Country: US (occurrence: US)
  Receive Date: 20150916
  Receipt Date: 20150916
  Transmission Date: 20151125
  Serious: No
  Sender: FDA-Public Use
  Company Number: US-ELI_LILLY_AND_COMPANY-US201311001674

PATIENT
  Sex: Female

DRUGS (19)
  1. HUMALOG [Suspect]
     Active Substance: INSULIN LISPRO
     Dosage: 16 U, QD
     Route: 065
  2. TORSEMIDE. [Concomitant]
     Active Substance: TORSEMIDE
     Dosage: 20 MG, UNK
  3. HUMALOG [Suspect]
     Active Substance: INSULIN LISPRO
     Dosage: 22 U, EACH EVENING
     Route: 065
     Dates: start: 201301
  4. HUMALOG [Suspect]
     Active Substance: INSULIN LISPRO
     Dosage: 16 U, QD
     Route: 065
  5. HUMALOG [Suspect]
     Active Substance: INSULIN LISPRO
     Indication: DIABETES MELLITUS
     Dosage: 14 U, EACH MORNING
     Route: 065
     Dates: start: 201301
  6. HUMALOG [Suspect]
     Active Substance: INSULIN LISPRO
     Dosage: 14 U, EACH MORNING
     Route: 065
  7. HUMALOG [Suspect]
     Active Substance: INSULIN LISPRO
     Dosage: 14 U, EACH MORNING
     Route: 065
  8. CLOPIDOGREL BISULFATE. [Concomitant]
     Active Substance: CLOPIDOGREL BISULFATE
     Dosage: 75 MG, UNK
  9. CARVEDILOL. [Concomitant]
     Active Substance: CARVEDILOL
  10. LANTUS [Concomitant]
     Active Substance: INSULIN GLARGINE
     Dosage: 35 U, EACH EVENING
  11. FENOFIBRATE. [Concomitant]
     Active Substance: FENOFIBRATE
  12. ISOSORBIDE. [Concomitant]
     Active Substance: ISOSORBIDE
     Dosage: 60 MG, UNK
  13. HUMALOG [Suspect]
     Active Substance: INSULIN LISPRO
     Dosage: 16 U, QD
     Route: 065
     Dates: start: 201301
  14. HUMALOG [Suspect]
     Active Substance: INSULIN LISPRO
     Dosage: 22 U, EACH EVENING
     Route: 065
  15. ZETIA [Concomitant]
     Active Substance: EZETIMIBE
     Dosage: 10 MG, UNK
  16. SPIRONOLACTONE. [Concomitant]
     Active Substance: SPIRONOLACTONE
  17. HUMALOG [Suspect]
     Active Substance: INSULIN LISPRO
     Dosage: 22 U, EACH EVENING
     Route: 065
  18. MAGNESIUM OXIDE. [Concomitant]
     Active Substance: MAGNESIUM OXIDE
     Dosage: 400 MG, UNK
  19. LOSARTAN POTASSIUM. [Concomitant]
     Active Substance: LOSARTAN POTASSIUM
     Dosage: 25 MG, UNK

REACTIONS (2)
  - Fatigue [Unknown]
  - Incorrect dose administered [Unknown]
